FAERS Safety Report 11632281 (Version 1)
Quarter: 2015Q4

REPORT INFORMATION
  Report Type: Spontaneous
  Country: US (occurrence: None)
  Receive Date: 20151014
  Receipt Date: 20151014
  Transmission Date: 20160304
  Serious: Yes (Life-Threatening, Hospitalization, Other)
  Sender: FDA-Public Use
  Company Number: None

PATIENT
  Age: 54 Year
  Sex: Female
  Weight: 61.24 kg

DRUGS (2)
  1. HYDROCHLOROTHIAZIDE. [Suspect]
     Active Substance: HYDROCHLOROTHIAZIDE
     Indication: BLOOD PRESSURE MEASUREMENT
     Dosage: 1 PILL
     Dates: start: 20150317, end: 20150323
  2. MULTI VITAMINS [Concomitant]

REACTIONS (5)
  - Blood pressure increased [None]
  - Rash macular [None]
  - Peripheral swelling [None]
  - Pain in extremity [None]
  - Contusion [None]

NARRATIVE: CASE EVENT DATE: 20150318
